FAERS Safety Report 17837366 (Version 1)
Quarter: 2020Q2

REPORT INFORMATION
  Report Type: Spontaneous
  Country: FR (occurrence: FR)
  Receive Date: 20200529
  Receipt Date: 20200529
  Transmission Date: 20200714
  Serious: Yes (Hospitalization, Other)
  Sender: FDA-Public Use
  Company Number: FR-AUROBINDO-AUR-APL-2020-025976

PATIENT
  Age: 22 Year
  Sex: Male

DRUGS (1)
  1. TRAMADOL. [Suspect]
     Active Substance: TRAMADOL
     Indication: PRODUCT USED FOR UNKNOWN INDICATION
     Dosage: 2000 MILLIGRAM (1 TOTAL)
     Route: 048
     Dates: start: 20200408, end: 20200408

REACTIONS (5)
  - Miosis [Recovered/Resolved]
  - Somnolence [Recovered/Resolved]
  - Acidosis [Recovering/Resolving]
  - Poisoning deliberate [Recovered/Resolved]
  - Bradypnoea [Recovering/Resolving]

NARRATIVE: CASE EVENT DATE: 20200408
